FAERS Safety Report 9219895 (Version 3)
Quarter: 2013Q2

REPORT INFORMATION
  Report Type: Spontaneous
  Country: US (occurrence: US)
  Receive Date: 20130409
  Receipt Date: 20130520
  Transmission Date: 20140414
  Serious: Yes (Death, Other)
  Sender: FDA-Public Use
  Company Number: US-SANOFI-AVENTIS-2013SA036020

PATIENT
  Age: 74 Year
  Sex: Female
  Weight: 77.11 kg

DRUGS (6)
  1. LOVENOX [Suspect]
     Indication: ATRIAL FIBRILLATION
     Dosage: DOSE: 1MG/KG
     Dates: start: 20130302, end: 20130303
  2. ASPIRIN [Concomitant]
  3. LISINOPRIL [Concomitant]
  4. SIMVASTATIN [Concomitant]
  5. LORAZEPAM [Concomitant]
  6. OMEPRAZOLE [Concomitant]

REACTIONS (8)
  - Renal failure [Fatal]
  - Hepatic failure [Unknown]
  - Retroperitoneal haematoma [Unknown]
  - Shock [Unknown]
  - Abdominal distension [Unknown]
  - Abdominal pain [Unknown]
  - Muscle haemorrhage [Recovered/Resolved]
  - Cough [Unknown]
